FAERS Safety Report 18423486 (Version 3)
Quarter: 2020Q4

REPORT INFORMATION
  Report Type: Spontaneous
  Country: US (occurrence: MX)
  Receive Date: 20201023
  Receipt Date: 20201102
  Transmission Date: 20210114
  Serious: Yes (Hospitalization, Other)
  Sender: FDA-Public Use
  Company Number: MX-BIOMARINAP-MX-2020-132703

PATIENT
  Age: 7 Year
  Sex: Male

DRUGS (1)
  1. ALDURAZYME [Suspect]
     Active Substance: LARONIDASE
     Indication: MUCOPOLYSACCHARIDOSIS I
     Dosage: UNK, QOW
     Route: 041

REACTIONS (8)
  - Neurosurgery [Recovering/Resolving]
  - Cerebrospinal fluid drainage [Recovering/Resolving]
  - Inappropriate schedule of product administration [Unknown]
  - Post procedural complication [Unknown]
  - Neurosurgery [Unknown]
  - Off label use [Unknown]
  - Walking disability [Recovering/Resolving]
  - Appendicitis [Recovering/Resolving]

NARRATIVE: CASE EVENT DATE: 2020
